FAERS Safety Report 6478300-3 (Version None)
Quarter: 2009Q4

REPORT INFORMATION
  Report Type: 
  Country: None (occurrence: None)
  Receive Date: 20091207
  Receipt Date: 20091128
  Transmission Date: 20100525
  Serious: Yes (Hospitalization)
  Sender: FDA-Public Use
  Company Number: US-ELI_LILLY_AND_COMPANY-US200909003069

PATIENT
  Sex: Male

DRUGS (9)
  1. HUMULIN R [Suspect]
     Indication: DIABETES MELLITUS
  2. HUMULIN R [Suspect]
  3. LANTUS [Concomitant]
     Dosage: 25 U, EACH EVENING
  4. ZOCOR [Concomitant]
     Dosage: 20 MG, DAILY (1/D)
  5. ARICEPT [Concomitant]
     Dosage: 10 MG, DAILY (1/D)
  6. PLAVIX [Concomitant]
     Dosage: 75 MG, DAILY (1/D)
  7. FLOMAX [Concomitant]
     Dosage: 0.4 MG, DAILY (1/D)
  8. COREG [Concomitant]
     Dosage: 25 MG, DAILY (1/D)
  9. LEXAPRO [Concomitant]
     Dosage: 20 MG, DAILY (1/D)

REACTIONS (7)
  - ASTHENIA [None]
  - BLOOD GLUCOSE INCREASED [None]
  - BRONCHITIS [None]
  - BRONCHOSPASM [None]
  - DEMENTIA ALZHEIMER'S TYPE [None]
  - MEDICATION ERROR [None]
  - PNEUMONIA [None]
